FAERS Safety Report 7280201-8 (Version None)
Quarter: 2011Q1

REPORT INFORMATION
  Report Type: 
  Country: None (occurrence: None)
  Receive Date: 20110208
  Receipt Date: 20110131
  Transmission Date: 20110831
  Serious: Yes (Other)
  Sender: FDA-Public Use
  Company Number: BE-JNJFOC-20110107829

PATIENT
  Age: 16 Year
  Sex: Male

DRUGS (3)
  1. RITALIN [Suspect]
     Indication: ILL-DEFINED DISORDER
     Route: 065
  2. RITALIN [Suspect]
     Route: 065
  3. RISPERDAL [Suspect]
     Indication: ILL-DEFINED DISORDER
     Route: 065

REACTIONS (4)
  - RASH [None]
  - CONTUSION [None]
  - LOSS OF CONSCIOUSNESS [None]
  - FALL [None]
